FAERS Safety Report 8396727-X (Version None)
Quarter: 2012Q2

REPORT INFORMATION
  Report Type: 
  Country: None (occurrence: None)
  Receive Date: 20120530
  Receipt Date: 20120522
  Transmission Date: 20120825
  Serious: Yes (Other)
  Sender: FDA-Public Use
  Company Number: US-CELGENEUS-163-21880-12051256

PATIENT
  Sex: Female
  Weight: 85.806 kg

DRUGS (6)
  1. LOVENOX [Concomitant]
     Route: 065
  2. REVLIMID [Suspect]
     Dosage: 10 MILLIGRAM
     Route: 048
     Dates: start: 20110701
  3. CALCIUM CARBONATE [Concomitant]
     Route: 065
  4. LEXAPRO [Concomitant]
     Route: 065
  5. REVLIMID [Suspect]
     Indication: PLASMACYTOMA
     Dosage: 5 MILLIGRAM
     Route: 048
     Dates: start: 20120401, end: 20120101
  6. ACYCLOVIR [Concomitant]
     Route: 065

REACTIONS (2)
  - LEUKAEMIA PLASMACYTIC [None]
  - PLASMACYTOMA [None]
